FAERS Safety Report 26005314 (Version 1)
Quarter: 2025Q4

REPORT INFORMATION
  Report Type: Report from Study
  Country: IN (occurrence: IN)
  Receive Date: 20251106
  Receipt Date: 20251106
  Transmission Date: 20260119
  Serious: Yes (Death)
  Sender: ROCHE
  Company Number: IN-ROCHE-10000427416

PATIENT
  Age: 53 Year
  Sex: Female

DRUGS (1)
  1. AVASTIN [Suspect]
     Active Substance: BEVACIZUMAB
     Indication: Product used for unknown indication
     Dosage: FREQUENCY: 21 DAY
     Route: 042
     Dates: start: 20251016

REACTIONS (1)
  - Death [Fatal]
